FAERS Safety Report 5051860-5 (Version None)
Quarter: 2006Q3

REPORT INFORMATION
  Report Type: 
  Country: None (occurrence: None)
  Receive Date: 20060712
  Receipt Date: 20060712
  Transmission Date: 20061208
  Serious: No
  Sender: FDA-Public Use
  Company Number: None

PATIENT
  Age: 92 Year
  Sex: Female
  Weight: 51.7101 kg

DRUGS (9)
  1. TERAZOSIN 2MG [Suspect]
     Indication: HYPERTENSION
     Dosage: 2MG, QHS, PO
     Route: 048
     Dates: start: 20060114, end: 20060301
  2. HYDROCODONE BITARTRATE + ACETAMINOPHEN [Concomitant]
  3. VERAPAMIL [Concomitant]
  4. FUROSEMIDE [Concomitant]
  5. LISINOPRIL [Concomitant]
  6. LOPERAMIDE [Concomitant]
  7. RISEDROMATE [Concomitant]
  8. SALSALATE [Concomitant]
  9. VIT A [Concomitant]

REACTIONS (1)
  - CARDIAC FAILURE CONGESTIVE [None]
